FAERS Safety Report 20764994 (Version 2)
Quarter: 2022Q2

REPORT INFORMATION
  Report Type: Spontaneous
  Country: US (occurrence: US)
  Receive Date: 20220428
  Receipt Date: 20220604
  Transmission Date: 20220721
  Serious: No
  Sender: FDA-Public Use
  Company Number: US-SA-SAC20220422001006

PATIENT
  Age: 38 Year
  Sex: Female

DRUGS (1)
  1. DUPIXENT [Suspect]
     Active Substance: DUPILUMAB
     Indication: Product used for unknown indication
     Dosage: 300 MG, QOW
     Route: 058
     Dates: start: 202102

REACTIONS (4)
  - Burning sensation [Not Recovered/Not Resolved]
  - Dehydration [Not Recovered/Not Resolved]
  - Rash [Not Recovered/Not Resolved]
  - Product dose omission in error [Unknown]

NARRATIVE: CASE EVENT DATE: 20220420
